FAERS Safety Report 8410941 (Version 4)
Quarter: 2012Q4

REPORT INFORMATION
  Report Type: 
  Country: US (occurrence: US)
  Receive Date: 20120217
  Receipt Date: 20120907
  Transmission Date: 20130627
  Serious: Yes (Hospitalization, Other)
  Sender: FDA-Public Use
  Company Number: US-PFIZER INC-2012000035

PATIENT
  Age: 67 Year
  Sex: Male
  Weight: 101.2 kg

DRUGS (11)
  1. SUTENT [Suspect]
     Indication: RENAL CELL CARCINOMA
     Dosage: 50 mg, 1x/day
     Route: 048
     Dates: start: 20110915, end: 20111013
  2. SUTENT [Suspect]
     Dosage: 37.5 mg, 1x/day
     Route: 048
     Dates: start: 20111028, end: 20111227
  3. SUTENT [Suspect]
     Dosage: 37.5 mg, 1x/day
     Route: 048
     Dates: start: 20120126, end: 20120131
  4. COUMADIN [Suspect]
     Indication: DEEP VEIN THROMBOSIS
     Dosage: 7.5/5.0 mg, 1x/day
     Route: 048
     Dates: start: 20111201, end: 20111212
  5. COUMADIN [Suspect]
     Dosage: 5 mg, 1x/day
     Route: 048
     Dates: start: 20111212, end: 20111228
  6. LOVENOX [Suspect]
     Indication: DEEP VEIN THROMBOSIS
     Dosage: 1 mg/kg, 2x/day
     Route: 058
     Dates: start: 20111117, end: 20111209
  7. LOVENOX [Suspect]
     Dosage: 1 mg/kg, 2x/day
     Route: 058
     Dates: start: 20120106, end: 20120131
  8. HYDRALAZINE [Concomitant]
     Dosage: 75 mg, 3x/day
     Route: 048
  9. LISINOPRIL [Concomitant]
     Dosage: 10 mg, UNK
     Route: 048
  10. VITAMIN D [Concomitant]
     Route: 048
  11. ZYRTEC [Concomitant]
     Route: 048

REACTIONS (1)
  - Subdural haematoma [Recovered/Resolved]
